FAERS Safety Report 10929227 (Version 1)
Quarter: 2015Q1

REPORT INFORMATION
  Report Type: Spontaneous
  Country: US (occurrence: None)
  Receive Date: 20150317
  Receipt Date: 20150317
  Transmission Date: 20150721
  Serious: Yes (Hospitalization)
  Sender: FDA-Public Use
  Company Number: None

PATIENT
  Age: 56 Year
  Sex: Male

DRUGS (1)
  1. TACROLIMUS. [Suspect]
     Active Substance: TACROLIMUS
     Indication: LIVER TRANSPLANT
     Dosage: QOD ALTERNATING WITH BID
     Route: 048
     Dates: start: 201212

REACTIONS (2)
  - Dyspnoea [None]
  - Infection [None]

NARRATIVE: CASE EVENT DATE: 20150215
